FAERS Safety Report 17587505 (Version 1)
Quarter: 2020Q1

REPORT INFORMATION
  Report Type: Report from Study
  Country: US (occurrence: US)
  Receive Date: 20200326
  Receipt Date: 20200326
  Transmission Date: 20200409
  Serious: Yes (Hospitalization)
  Sender: FDA-Public Use
  Company Number: US-ACTELION-A-NJ2018-165811

PATIENT
  Sex: Female

DRUGS (2)
  1. OPSUMIT [Suspect]
     Active Substance: MACITENTAN
     Indication: PULMONARY ARTERIAL HYPERTENSION
     Dosage: 10 MG, QD
     Route: 048
     Dates: start: 20171120
  2. INSULIN [Concomitant]
     Active Substance: INSULIN NOS
     Dosage: BD PEN

REACTIONS (11)
  - Sleep disorder [Unknown]
  - Dry skin [Unknown]
  - Liver transplant [Unknown]
  - Cystitis [Unknown]
  - Seasonal affective disorder [Unknown]
  - Infection [Unknown]
  - Chest pain [Not Recovered/Not Resolved]
  - Insomnia [Unknown]
  - Rash [Not Recovered/Not Resolved]
  - Swelling [Recovering/Resolving]
  - Somnolence [Unknown]

NARRATIVE: CASE EVENT DATE: 2018
